FAERS Safety Report 6610873-X (Version None)
Quarter: 2010Q1

REPORT INFORMATION
  Report Type: 
  Country: None (occurrence: None)
  Receive Date: 20100219
  Receipt Date: 20100216
  Transmission Date: 20100710
  Serious: Yes (Death, Other)
  Sender: FDA-Public Use
  Company Number: CERZ-1001038

PATIENT
  Age: 10 Year
  Sex: Male
  Weight: 25 kg

DRUGS (4)
  1. CEREZYME [Suspect]
     Indication: GAUCHER'S DISEASE
     Dosage: 1200 U
     Dates: start: 20090507, end: 20091015
  2. CALCIUM (ASCORBIC ACID) [Concomitant]
  3. BIPHOSPHONATE [Concomitant]
  4. CEREZYME [Suspect]

REACTIONS (16)
  - CHEST DISCOMFORT [None]
  - COAGULOPATHY [None]
  - DISEASE PROGRESSION [None]
  - FEBRILE CONVULSION [None]
  - GAUCHER'S DISEASE [None]
  - HAEMOGLOBIN DECREASED [None]
  - HEPATOSPLENOMEGALY [None]
  - HYPERSENSITIVITY [None]
  - LOWER LIMB FRACTURE [None]
  - NO THERAPEUTIC RESPONSE [None]
  - OSTEOPENIA [None]
  - PATHOLOGICAL FRACTURE [None]
  - PYREXIA [None]
  - SUFFOCATION FEELING [None]
  - SYNCOPE [None]
  - URTICARIA [None]
